FAERS Safety Report 5796658-5 (Version None)
Quarter: 2008Q2

REPORT INFORMATION
  Report Type: 
  Country: None (occurrence: None)
  Receive Date: 20080630
  Receipt Date: 20080630
  Transmission Date: 20081010
  Serious: Yes (Hospitalization, Disabling)
  Sender: FDA-Public Use
  Company Number: None

PATIENT
  Age: 44 Year
  Sex: Female
  Weight: 54.4316 kg

DRUGS (2)
  1. TAXUS DES BOSTIN SCIENTIFIC [Suspect]
     Indication: MYOCARDIAL INFARCTION
     Dosage: ISONIAZID 300MG QD PO
     Route: 048
     Dates: start: 20041108, end: 20080629
  2. CORDIS,CYPRESS DES CORDIS CORPORATION [Suspect]
     Indication: TUBERCULIN TEST POSITIVE
     Dosage: SIROLIMUS CORONARY DES
     Dates: start: 20070612, end: 20070812

REACTIONS (25)
  - ANOREXIA [None]
  - ARTHRALGIA [None]
  - ASTHENIA [None]
  - CHEST PAIN [None]
  - CONDITION AGGRAVATED [None]
  - CONFUSIONAL STATE [None]
  - DIARRHOEA [None]
  - DRUG INTERACTION [None]
  - ECONOMIC PROBLEM [None]
  - EYE PAIN [None]
  - FEAR [None]
  - GAIT DISTURBANCE [None]
  - HEPATITIS TOXIC [None]
  - INTRACRANIAL ANEURYSM [None]
  - LOSS OF EMPLOYMENT [None]
  - MYALGIA [None]
  - NAUSEA [None]
  - PAIN IN EXTREMITY [None]
  - PALPITATIONS [None]
  - QUALITY OF LIFE DECREASED [None]
  - STENT OCCLUSION [None]
  - THINKING ABNORMAL [None]
  - TUBERCULIN TEST POSITIVE [None]
  - VISUAL ACUITY REDUCED [None]
  - VOMITING [None]
